FAERS Safety Report 5668195-X (Version None)
Quarter: 2008Q1

REPORT INFORMATION
  Report Type: 
  Country: None (occurrence: None)
  Receive Date: 20080315
  Receipt Date: 20080218
  Transmission Date: 20080703
  Serious: No
  Sender: FDA-Public Use
  Company Number: US-ABBOTT-08P-163-0438829-00

PATIENT
  Sex: Male
  Weight: 82.174 kg

DRUGS (1)
  1. HUMIRA [Suspect]
     Indication: RHEUMATOID ARTHRITIS
     Route: 058
     Dates: start: 20060701, end: 20080201

REACTIONS (3)
  - DRUG INEFFECTIVE [None]
  - PAIN [None]
  - SWELLING [None]
